FAERS Safety Report 22309881 (Version 1)
Quarter: 2023Q2

REPORT INFORMATION
  Report Type: Spontaneous
  Country: US (occurrence: None)
  Receive Date: 20230510
  Receipt Date: 20230510
  Transmission Date: 20230721
  Serious: Yes (Hospitalization, Other)
  Sender: FDA-Public Use
  Company Number: None

PATIENT
  Age: 46 Year
  Sex: Female
  Weight: 109.8 kg

DRUGS (4)
  1. LACTULOSE [Suspect]
     Active Substance: LACTULOSE
     Indication: Hepatic cirrhosis
     Dosage: OTHER QUANTITY : 5 1;?
  2. OXYGEN [Concomitant]
     Active Substance: OXYGEN
  3. xiafaxin [Concomitant]
  4. THYROID [Concomitant]
     Active Substance: LEVOTHYROXINE\LIOTHYRONINE

REACTIONS (3)
  - Abdominal pain upper [None]
  - Vomiting [None]
  - Malaise [None]

NARRATIVE: CASE EVENT DATE: 20230420
